FAERS Safety Report 5377519-2 (Version None)
Quarter: 2007Q3

REPORT INFORMATION
  Report Type: 
  Country: None (occurrence: None)
  Receive Date: 20070703
  Receipt Date: 20070625
  Transmission Date: 20080115
  Serious: Yes (Life-Threatening, Hospitalization)
  Sender: FDA-Public Use
  Company Number: PHEH2007US09432

PATIENT
  Sex: Male

DRUGS (1)
  1. TEKTURNA [Suspect]
     Indication: HYPERTENSION
     Route: 048

REACTIONS (3)
  - LIFE SUPPORT [None]
  - MUSCULAR WEAKNESS [None]
  - RESPIRATORY FAILURE [None]
